FAERS Safety Report 15797819 (Version 1)
Quarter: 2019Q1

REPORT INFORMATION
  Report Type: Report from Study
  Country: None (occurrence: BR)
  Receive Date: 20190108
  Receipt Date: 20190108
  Transmission Date: 20190417
  Serious: Yes (Other)
  Sender: FDA-Public Use
  Company Number: BR-ABBVIE-17P-020-1854734-00

PATIENT
  Age: 57 Year
  Sex: Female
  Weight: 57 kg

DRUGS (5)
  1. HUMIRA [Suspect]
     Active Substance: ADALIMUMAB
     Indication: RHEUMATOID ARTHRITIS
     Route: 058
     Dates: start: 20160511
  2. FOLIC ACID. [Concomitant]
     Active Substance: FOLIC ACID
     Indication: OSTEOPOROSIS PROPHYLAXIS
     Route: 048
  3. OSTEOFIX [Concomitant]
     Indication: OSTEOPOROSIS PROPHYLAXIS
     Dosage: FORM STRENGTH: 125 MG + 500 MG + 200 IU
     Route: 048
  4. PREDNISONE. [Concomitant]
     Active Substance: PREDNISONE
     Indication: ARTHRITIS
     Route: 048
     Dates: start: 2002
  5. DIPYRONE [Concomitant]
     Active Substance: DIPYRONE
     Indication: ARTHRITIS
     Route: 048
     Dates: start: 2002

REACTIONS (4)
  - Osteoarthritis [Recovered/Resolved]
  - Osteoporosis [Recovered/Resolved]
  - Pain in extremity [Unknown]
  - Anaemia [Unknown]

NARRATIVE: CASE EVENT DATE: 201810
